FAERS Safety Report 10011676 (Version 1)
Quarter: 2014Q1

REPORT INFORMATION
  Report Type: Spontaneous
  Country: US (occurrence: US)
  Receive Date: 20140314
  Receipt Date: 20140314
  Transmission Date: 20141002
  Serious: Yes (Hospitalization)
  Sender: FDA-Public Use
  Company Number: US-BAYER-2014-035160

PATIENT
  Age: 60 Year
  Sex: Female
  Weight: 94.6 kg

DRUGS (7)
  1. BAYER ADVANCED ASPIRIN EXTRA STRENGTH [Suspect]
     Indication: ISCHAEMIC HEART DISEASE PROPHYLAXIS
     Dosage: UNK
     Route: 048
     Dates: start: 20131019, end: 20131019
  2. NAPROXEN SODIUM [Suspect]
     Dosage: UNK UNK, BID
     Dates: start: 20131018, end: 20131019
  3. AMLODIPIN [Concomitant]
     Indication: HYPERTENSION
     Dosage: UNK
     Dates: start: 20130520
  4. ENALAPRIL [Concomitant]
     Indication: HYPERTENSION
     Dosage: UNK
     Dates: start: 20130520, end: 20131016
  5. TRAMADOL [Concomitant]
     Indication: ARTHRALGIA
     Dosage: UNK
     Dates: start: 20130520
  6. SIMVASTATIN [Concomitant]
     Indication: BLOOD CHOLESTEROL INCREASED
     Dosage: UNK UNK, QD
     Dates: start: 20131019
  7. METHOCARBAMOL [Concomitant]
     Indication: MUSCLE SPASMS
     Dosage: UNK
     Dates: start: 20130520, end: 20131007

REACTIONS (4)
  - Depressed level of consciousness [Recovered/Resolved]
  - Unresponsive to stimuli [Recovered/Resolved]
  - Pyrexia [Recovered/Resolved]
  - Hypertension [Recovered/Resolved]
